FAERS Safety Report 4609599-3 (Version None)
Quarter: 2005Q1

REPORT INFORMATION
  Report Type: 
  Country: None (occurrence: None)
  Receive Date: 20050304
  Receipt Date: 20050218
  Transmission Date: 20050727
  Serious: Yes (Other)
  Sender: FDA-Public Use
  Company Number: 200510190BBE

PATIENT
  Sex: Male

DRUGS (10)
  1. KOATE [Suspect]
     Indication: FACTOR VIII DEFICIENCY
  2. KONYNE [Suspect]
     Indication: FACTOR VIII DEFICIENCY
  3. ANTIHEMOPHILIC FACTOR (HUMAN) [Suspect]
     Indication: FACTOR VIII DEFICIENCY
  4. FACTOPR IX (BAXTER) (FACTOR IX) [Suspect]
     Indication: FACTOR VIII DEFICIENCY
  5. FACTOR VIII (ARMOUR PHARMACEUTICAL) (FACTOR VIII) [Suspect]
     Indication: FACTOR VIII DEFICIENCY
  6. FACTOR IX (ARMOUR PHARMACEUTICAL ) (FACTOR IX) [Suspect]
     Indication: FACTOR VIII DEFICIENCY
  7. ANTIHEMOPHILIC FACTOR (HUMAN) [Suspect]
     Indication: FACTOR VIII DEFICIENCY
  8. FACTOR IX COMPLEX [Suspect]
     Indication: FACTOR VIII DEFICIENCY
  9. FACTOR VIII (APLPHA THERAPUTICS) (FACTOR VIII) [Suspect]
     Indication: FACTOR VIII DEFICIENCY
  10. FACTOR IX COMPLEX [Suspect]
     Indication: FACTOR VIII DEFICIENCY

REACTIONS (2)
  - HEPATITIS C [None]
  - HIV TEST POSITIVE [None]
